FAERS Safety Report 9458591 (Version 1)
Quarter: 2013Q3

REPORT INFORMATION
  Report Type: Spontaneous
  Country: ES (occurrence: ES)
  Receive Date: 20130814
  Receipt Date: 20130814
  Transmission Date: 20140515
  Serious: Yes (Hospitalization)
  Sender: FDA-Public Use
  Company Number: ES-TEVA-424527ISR

PATIENT
  Age: 24 Year
  Sex: Male

DRUGS (2)
  1. IBUPROFEN [Suspect]
     Indication: LIGAMENT SPRAIN
     Route: 065
  2. OMEPRAZOLE [Concomitant]
     Indication: LIGAMENT SPRAIN
     Route: 065

REACTIONS (1)
  - Drug eruption [Unknown]
